FAERS Safety Report 7228904-5 (Version None)
Quarter: 2011Q1

REPORT INFORMATION
  Report Type: 
  Country: None (occurrence: None)
  Receive Date: 20110117
  Receipt Date: 20110107
  Transmission Date: 20110831
  Serious: Yes (Death)
  Sender: FDA-Public Use
  Company Number: DE-ELI_LILLY_AND_COMPANY-DE201101002363

PATIENT
  Age: 60 Year
  Sex: Male
  Weight: 104 kg

DRUGS (2)
  1. PRASUGREL HYDROCHLORIDE [Suspect]
     Indication: ACUTE CORONARY SYNDROME
     Dosage: 60 MG LOADING DOSE
     Dates: start: 20101020, end: 20101020
  2. ASPIRIN [Concomitant]

REACTIONS (2)
  - CARDIAC FAILURE [None]
  - CIRCULATORY COLLAPSE [None]
